FAERS Safety Report 24167047 (Version 1)
Quarter: 2024Q3

REPORT INFORMATION
  Report Type: Spontaneous
  Country: US (occurrence: None)
  Receive Date: 20240801
  Receipt Date: 20240801
  Transmission Date: 20241017
  Serious: Yes (Other)
  Sender: Public
  Company Number: None

PATIENT
  Age: 93 Year
  Sex: Female

DRUGS (1)
  1. JAKAFI [Suspect]
     Active Substance: RUXOLITINIB
     Dosage: 60 TABLETS TWICE A DAY ORAL
     Route: 048
     Dates: start: 20191109

REACTIONS (2)
  - Back disorder [None]
  - Muscle strain [None]

NARRATIVE: CASE EVENT DATE: 20240730
